FAERS Safety Report 10153344 (Version 2)
Quarter: 2014Q2

REPORT INFORMATION
  Report Type: Other
  Country: US (occurrence: US)
  Receive Date: 20140505
  Receipt Date: 20140516
  Transmission Date: 20141212
  Serious: Yes (Death)
  Sender: FDA-Public Use
  Company Number: US-NAPPMUNDI-DEU-2014-0014289

PATIENT
  Age: 29 Year
  Sex: Male

DRUGS (8)
  1. HYDROMORPHONE HCL INJECTABLE [Suspect]
     Indication: HEADACHE
     Dosage: 4 MG, TWICE
     Route: 042
  2. NON-PMN MORPHINE SULFATE [Suspect]
     Indication: HEADACHE
     Dosage: 10 MG, SEE TEXT
     Route: 042
  3. CODEINE [Suspect]
     Indication: HEADACHE
     Dosage: 60 MG, SINGLE
     Route: 048
  4. ACETAMINOPHEN [Suspect]
     Indication: HEADACHE
     Dosage: 650 MG, SINGLE
     Route: 048
  5. ACETAMINOPHEN [Suspect]
     Dosage: UNK, SEE TEXT
  6. HYDROCODONE BITARTRATE [Suspect]
     Indication: HEADACHE
     Dosage: UNK, SEE TEXT
  7. IBUPROFEN [Suspect]
     Indication: HEADACHE
  8. METOCLOPRAMIDE [Concomitant]
     Dosage: 10 MG, TWICE
     Route: 042

REACTIONS (3)
  - Sudden death [Fatal]
  - Urinary incontinence [Unknown]
  - Headache [Unknown]
